FAERS Safety Report 22967593 (Version 2)
Quarter: 2023Q4

REPORT INFORMATION
  Report Type: Report from Study
  Country: DE (occurrence: DE)
  Receive Date: 20230921
  Receipt Date: 20231009
  Transmission Date: 20240110
  Serious: Yes (Other)
  Sender: FDA-Public Use
  Company Number: DE-002147023-NVSC2023DE189934

PATIENT
  Sex: Female

DRUGS (1)
  1. IMATINIB [Suspect]
     Active Substance: IMATINIB
     Indication: Chronic myeloid leukaemia
     Dosage: UNK
     Route: 065

REACTIONS (2)
  - Therapy non-responder [Unknown]
  - Drug intolerance [Unknown]
